FAERS Safety Report 11302092 (Version 1)
Quarter: 2015Q2

REPORT INFORMATION
  Report Type: Spontaneous
  Country: US (occurrence: None)
  Receive Date: 20150626
  Receipt Date: 20150626
  Transmission Date: 20150821
  Serious: No
  Sender: FDA-Public Use
  Company Number: 1000076192

PATIENT
  Sex: Female

DRUGS (1)
  1. LINZESS [Suspect]
     Active Substance: LINACLOTIDE
     Indication: CONSTIPATION
     Dosage: 290MCG (145 MCG, 2 IN 1 D)
     Dates: start: 20150417

REACTIONS (5)
  - Headache [None]
  - Drug ineffective [None]
  - Pyrexia [None]
  - Pain [None]
  - Intentional product misuse [None]

NARRATIVE: CASE EVENT DATE: 20150417
